FAERS Safety Report 9101664 (Version 1)
Quarter: 2013Q1

REPORT INFORMATION
  Report Type: Spontaneous
  Country: US (occurrence: US)
  Receive Date: 20130215
  Receipt Date: 20130215
  Transmission Date: 20140127
  Serious: No
  Sender: FDA-Public Use
  Company Number: US-009507513-1301USA014183

PATIENT
  Age: 70 None
  Sex: Female

DRUGS (2)
  1. COSOPT PF [Suspect]
     Indication: GLAUCOMA
     Dosage: 2 GTT, BID
     Route: 047
     Dates: start: 201301
  2. COSOPT PF [Suspect]
     Dosage: 2 GTT, BID
     Route: 047
     Dates: start: 20130129

REACTIONS (4)
  - Pain [Unknown]
  - Eye injury [Unknown]
  - Eye injury [Unknown]
  - Product quality issue [Unknown]
